FAERS Safety Report 10089336 (Version 2)
Quarter: 2014Q3

REPORT INFORMATION
  Report Type: Spontaneous
  Country: AU (occurrence: None)
  Receive Date: 20140417
  Receipt Date: 20140722
  Transmission Date: 20150326
  Serious: Yes (Hospitalization)
  Sender: FDA-Public Use
  Company Number: AUR-APL-2014-04606

PATIENT
  Age: 31 Year
  Sex: Male

DRUGS (5)
  1. TRAMADOL HCL [Suspect]
     Active Substance: TRAMADOL HYDROCHLORIDE
     Indication: PRODUCT USED FOR UNKNOWN INDICATION
     Dates: end: 20120604
  2. AURO-QUETIAPINE 200 [Suspect]
     Active Substance: QUETIAPINE
     Indication: PRODUCT USED FOR UNKNOWN INDICATION
  3. DEXAMPHETAMINE [Suspect]
     Active Substance: AMPHETAMINE
     Indication: PRODUCT USED FOR UNKNOWN INDICATION
     Route: 048
  4. ACAMPROSATE CALCIUM (ACAMPROSATE CALCIUM) [Concomitant]
  5. PANADEINE FORTE (PANADEINE CO) [Concomitant]

REACTIONS (4)
  - Fall [None]
  - Convulsion [None]
  - Toxicity to various agents [None]
  - Loss of consciousness [None]

NARRATIVE: CASE EVENT DATE: 20120604
